FAERS Safety Report 19674180 (Version 1)
Quarter: 2021Q3

REPORT INFORMATION
  Report Type: Spontaneous
  Country: US (occurrence: US)
  Receive Date: 20210807
  Receipt Date: 20210807
  Transmission Date: 20211014
  Serious: Yes (Hospitalization)
  Sender: FDA-Public Use
  Company Number: None

PATIENT
  Age: 59 Year
  Sex: Male

DRUGS (1)
  1. REVLIMID [Suspect]
     Active Substance: LENALIDOMIDE
     Indication: FOLLICULAR LYMPHOMA
     Route: 048
     Dates: start: 20210107

REACTIONS (4)
  - Dysuria [None]
  - Urinary tract infection [None]
  - COVID-19 [None]
  - Sepsis [None]

NARRATIVE: CASE EVENT DATE: 20210716
